FAERS Safety Report 8275298-2 (Version None)
Quarter: 2012Q2

REPORT INFORMATION
  Report Type: 
  Country: None (occurrence: None)
  Receive Date: 20120411
  Receipt Date: 20120406
  Transmission Date: 20120825
  Serious: Yes (Other)
  Sender: FDA-Public Use
  Company Number: CA-PFIZER INC-2012028257

PATIENT
  Sex: Male

DRUGS (1)
  1. INSPRA [Suspect]
     Indication: SECONDARY HYPERTENSION

REACTIONS (2)
  - COGNITIVE DISORDER [None]
  - PROSTATIC SPECIFIC ANTIGEN INCREASED [None]
